FAERS Safety Report 4453309-X (Version None)
Quarter: 2004Q3

REPORT INFORMATION
  Report Type: 
  Country: None (occurrence: None)
  Receive Date: 20040902
  Receipt Date: 20040517
  Transmission Date: 20050211
  Serious: No
  Sender: FDA-Public Use
  Company Number: 200417904BWH

PATIENT
  Sex: Male

DRUGS (4)
  1. LEVITRA [Suspect]
     Dosage: 10 MG, TOTAL DAILY, ORAL
     Route: 048
  2. MOTRIN [Concomitant]
  3. SUDAFED S.A. [Concomitant]
  4. AMPICILLIAN [Concomitant]

REACTIONS (1)
  - DRUG INEFFECTIVE [None]
